FAERS Safety Report 8909986 (Version 1)
Quarter: 2012Q4

REPORT INFORMATION
  Report Type: 
  Country: US (occurrence: US)
  Receive Date: 20121115
  Receipt Date: 20121115
  Transmission Date: 20130627
  Serious: Yes (Other)
  Sender: FDA-Public Use
  Company Number: US-ABBOTT-12P-163-1005545-00

PATIENT

DRUGS (1)
  1. DEPAKOTE ER [Suspect]
     Indication: BIPOLAR DISORDER

REACTIONS (7)
  - Spinal disorder [Unknown]
  - Adverse drug reaction [Unknown]
  - Unevaluable event [Unknown]
  - Respiratory tract infection [Unknown]
  - Foot fracture [Unknown]
  - Pain [Unknown]
  - Sleep disorder [Unknown]
